FAERS Safety Report 4841236-5 (Version None)
Quarter: 2005Q4

REPORT INFORMATION
  Report Type: 
  Country: None (occurrence: None)
  Receive Date: 20051130
  Receipt Date: 20051123
  Transmission Date: 20060501
  Serious: Yes (Death)
  Sender: FDA-Public Use
  Company Number: FR-AVENTIS-200513839FR

PATIENT
  Age: 75 Year
  Sex: Male

DRUGS (7)
  1. LOVENOX [Suspect]
     Route: 058
     Dates: start: 20050804, end: 20050809
  2. LOVENOX [Suspect]
     Route: 058
     Dates: start: 20050815, end: 20050820
  3. LOVENOX [Suspect]
     Route: 058
     Dates: start: 20050822, end: 20050822
  4. HEPARIN [Suspect]
     Route: 042
     Dates: start: 20050810, end: 20050814
  5. ORGARAN [Suspect]
     Dates: start: 20050824, end: 20050828
  6. ORGARAN [Suspect]
     Dates: start: 20050831, end: 20050904
  7. ANTIBIOTICS [Concomitant]

REACTIONS (9)
  - BACTERIAL INFECTION [None]
  - HEPARIN-INDUCED THROMBOCYTOPENIA [None]
  - POST PROCEDURAL COMPLICATION [None]
  - RENAL FAILURE ACUTE [None]
  - SEPTIC SHOCK [None]
  - SURGERY [None]
  - THERAPY NON-RESPONDER [None]
  - THROMBOCYTOPENIA [None]
  - THROMBOSIS IN DEVICE [None]
